FAERS Safety Report 9652103 (Version 2)
Quarter: 2014Q1

REPORT INFORMATION
  Report Type: Spontaneous
  Country: AU (occurrence: AU)
  Receive Date: 20131029
  Receipt Date: 20140204
  Transmission Date: 20141002
  Serious: Yes (Hospitalization, Other)
  Sender: FDA-Public Use
  Company Number: AU-ABBVIE-13P-008-1162523-00

PATIENT
  Age: 70 Year
  Sex: Male
  Weight: 95.8 kg

DRUGS (5)
  1. LUCRIN DEPOT [Suspect]
     Indication: PROSTATE CANCER
     Route: 030
     Dates: start: 20121202
  2. ZANIDIP [Concomitant]
     Indication: HYPERTENSION
     Dosage: NOCTE
     Route: 048
     Dates: start: 2007
  3. AVAPRO [Concomitant]
     Indication: HYPERTENSION
     Dosage: MANE
     Route: 048
     Dates: start: 2012
  4. PANADOL OSTEO [Concomitant]
     Indication: MYALGIA
     Route: 048
     Dates: start: 201307
  5. PANADOL OSTEO [Concomitant]
     Indication: ARTHRALGIA

REACTIONS (7)
  - Hypertension [Recovering/Resolving]
  - Weight increased [Recovering/Resolving]
  - Lethargy [Not Recovered/Not Resolved]
  - Arthralgia [Not Recovered/Not Resolved]
  - Myalgia [Not Recovered/Not Resolved]
  - Vertigo positional [Unknown]
  - Presyncope [Unknown]
